FAERS Safety Report 6076818-9 (Version None)
Quarter: 2009Q1

REPORT INFORMATION
  Report Type: 
  Country: None (occurrence: None)
  Receive Date: 20090213
  Receipt Date: 20090204
  Transmission Date: 20090719
  Serious: Yes (Hospitalization)
  Sender: FDA-Public Use
  Company Number: CA-BIOGENIDEC-2008BI033391

PATIENT
  Age: 28 Year
  Sex: Female

DRUGS (1)
  1. TYSABRI [Suspect]
     Indication: MULTIPLE SCLEROSIS
     Route: 042
     Dates: start: 20080430

REACTIONS (9)
  - DECREASED APPETITE [None]
  - DYSPEPSIA [None]
  - ENDOCRINE TEST ABNORMAL [None]
  - GASTRIC DISORDER [None]
  - GASTROENTERITIS [None]
  - HEART RATE INCREASED [None]
  - URINARY TRACT INFECTION [None]
  - VOMITING [None]
  - WEIGHT DECREASED [None]
